FAERS Safety Report 23934448 (Version 3)
Quarter: 2024Q3

REPORT INFORMATION
  Report Type: Report from Study
  Country: BR (occurrence: None)
  Receive Date: 20240603
  Receipt Date: 20240705
  Transmission Date: 20241017
  Serious: Yes (Life-Threatening, Hospitalization, Other)
  Sender: ASTRAZENECA
  Company Number: 2024A045274

PATIENT
  Age: 19541 Day
  Sex: Female
  Weight: 88 kg

DRUGS (17)
  1. FASENRA [Suspect]
     Active Substance: BENRALIZUMAB
     Indication: Asthma
     Dosage: 30MG/ML EVERY EIGHT WEEKS
     Route: 058
     Dates: start: 20210910, end: 20240222
  2. INSULIN NOS [Concomitant]
     Active Substance: INSULIN NOS
  3. MPID : 43744(1.01) : LOSARTAN [Concomitant]
     Indication: Hypertension
     Dosage: ONE TABLET
     Route: 048
  4. MPID : 41297(1.01) : AMLODIPINE [Concomitant]
     Dosage: ONE TABLET
     Route: 048
  5. MPID : 16245(1.01) : SALBUTAMOL [Concomitant]
     Dosage: 6 PUFF^S EVERY 15 MINUTES
     Route: 055
  6. MPID : 45802(1.01) : GLIMEPIRIDE [Concomitant]
     Dosage: ONE TABLET4.0UG UNKNOWN
     Route: 048
  7. MPID : 2632797(1.01) : MONTELUCAST [Concomitant]
     Dosage: ONE TABLET
     Route: 048
  8. MPID : 1503180(1.01) : PREDSIM [Concomitant]
     Dosage: ONE TABLET
  9. PURAN [Concomitant]
     Active Substance: LEVOTHYROXINE SODIUM
     Indication: Hypothyroidism
     Dosage: ONE TABLET WHEN FASTING
  10. MPID : 38719(1.01) : SIMVASTATIN [Concomitant]
     Indication: Blood cholesterol
     Dosage: ONE TABLET AT NIGHT
  11. MPID : 2308(1.01) : HYDRALAZINE [Concomitant]
     Dosage: ONE TABLET
     Dates: start: 202403
  12. MPID : 2109(1.01) : SPIRONOLACTONE [Concomitant]
     Dosage: ONE TABLET
  13. MPID : 4802810(1.01) : SPIRIVA [Concomitant]
     Dosage: 2 PUFF^S IN THE MORNING AND 2 PUFF^S IN THE EVENING
     Route: 055
  14. MPID : 4647084(1.01) : ACOG [Concomitant]
     Indication: Anticoagulant therapy
     Dosage: ONCE A TABLET
  15. MPID : 3844642(1.01) : SERETIDE [Concomitant]
     Dosage: 2 PUFF^S IN THE MORNING AND 2 PUFF^S IN THE EVENING
     Route: 055
  16. BAMIFILLINE [Concomitant]
     Indication: Chronic obstructive pulmonary disease
     Dosage: ONE TABLET WHEN FASTING
  17. AMLODIPINE [Concomitant]
     Active Substance: AMLODIPINE BESYLATE
     Dosage: ONE TABLET WHEN FASTING

REACTIONS (31)
  - Lung disorder [Unknown]
  - Asthmatic crisis [Not Recovered/Not Resolved]
  - Aspiration [Unknown]
  - Thrombosis [Unknown]
  - Thrombophlebitis [Unknown]
  - Pain in extremity [Not Recovered/Not Resolved]
  - Blood glucose increased [Unknown]
  - Hypercapnia [Unknown]
  - Joint effusion [Unknown]
  - Pneumonia [Unknown]
  - Osteoarthritis [Unknown]
  - Chondromalacia [Unknown]
  - Bronchospasm [Unknown]
  - Syncope [Unknown]
  - Erythema [Unknown]
  - Vision blurred [Unknown]
  - Pyrexia [Unknown]
  - Intrapulmonary lymphadenopathy [Unknown]
  - Echocardiogram abnormal [Unknown]
  - Swelling [Unknown]
  - Hyperglycaemia [Unknown]
  - Pain [Unknown]
  - Anxiety [Unknown]
  - Weight abnormal [Unknown]
  - Inappropriate schedule of product administration [Unknown]
  - Condition aggravated [Unknown]
  - Cardiovascular disorder [Unknown]
  - Product dose omission issue [Unknown]
  - Headache [Unknown]
  - Amnesia [Unknown]
  - Fatigue [Unknown]

NARRATIVE: CASE EVENT DATE: 20230901
